FAERS Safety Report 24966198 (Version 1)
Quarter: 2025Q1

REPORT INFORMATION
  Report Type: Spontaneous
  Country: US (occurrence: US)
  Receive Date: 20250213
  Receipt Date: 20250213
  Transmission Date: 20250408
  Serious: No
  Sender: INCYTE
  Company Number: US-EVENT-001483

PATIENT

DRUGS (1)
  1. OPZELURA [Suspect]
     Active Substance: RUXOLITINIB PHOSPHATE
     Indication: Alopecia
     Route: 065

REACTIONS (2)
  - Product temperature excursion issue [Unknown]
  - Off label use [Unknown]
